FAERS Safety Report 6024671-1 (Version None)
Quarter: 2008Q4

REPORT INFORMATION
  Report Type: 
  Country: None (occurrence: None)
  Receive Date: 20081231
  Receipt Date: 20081226
  Transmission Date: 20090506
  Serious: Yes (Death, Hospitalization, Other)
  Sender: FDA-Public Use
  Company Number: JP-BRISTOL-MYERS SQUIBB COMPANY-14456222

PATIENT
  Age: 78 Year
  Sex: Male

DRUGS (2)
  1. TAXOL [Suspect]
     Indication: LUNG NEOPLASM MALIGNANT
     Route: 041
  2. CARBOMERCK [Suspect]
     Indication: LUNG NEOPLASM MALIGNANT
     Route: 041

REACTIONS (13)
  - CHOLECYSTITIS ACUTE [None]
  - CLOSTRIDIAL INFECTION [None]
  - DIVERTICULAR PERFORATION [None]
  - FUNGAEMIA [None]
  - GASTROINTESTINAL PERFORATION [None]
  - GASTROINTESTINAL STOMA COMPLICATION [None]
  - HENOCH-SCHONLEIN PURPURA [None]
  - INTERSTITIAL LUNG DISEASE [None]
  - MALIGNANT NEOPLASM PROGRESSION [None]
  - PERITONITIS [None]
  - PSEUDOMEMBRANOUS COLITIS [None]
  - RENAL FAILURE [None]
  - SHOCK [None]
